FAERS Safety Report 5482744-6 (Version None)
Quarter: 2007Q4

REPORT INFORMATION
  Report Type: 
  Country: None (occurrence: None)
  Receive Date: 20071011
  Receipt Date: 20070928
  Transmission Date: 20080405
  Serious: Yes (Other)
  Sender: FDA-Public Use
  Company Number: CA-PFIZER INC-2007083013

PATIENT
  Age: 50 Year
  Sex: Female

DRUGS (1)
  1. CYCLOKAPRON (IV) [Suspect]
     Indication: MENSTRUAL DISORDER

REACTIONS (1)
  - MYOCARDIAL INFARCTION [None]
